FAERS Safety Report 19792669 (Version 1)
Quarter: 2021Q3

REPORT INFORMATION
  Report Type: Spontaneous
  Country: PT (occurrence: PT)
  Receive Date: 20210906
  Receipt Date: 20210906
  Transmission Date: 20211014
  Serious: Yes (Other)
  Sender: FDA-Public Use
  Company Number: PT-MYLANLABS-2021M1058324

PATIENT
  Age: 81 Year
  Sex: Female

DRUGS (5)
  1. MELATONIN [Suspect]
     Active Substance: MELATONIN
     Indication: PRODUCT USED FOR UNKNOWN INDICATION
     Dosage: UNK
     Route: 048
  2. ESCITALOPRAM [Concomitant]
     Active Substance: ESCITALOPRAM OXALATE
     Dosage: UNK
  3. MIRTAZAPINE MYLAN [Suspect]
     Active Substance: MIRTAZAPINE
     Indication: PRODUCT USED FOR UNKNOWN INDICATION
     Dosage: 15 MILLIGRAM, QD
     Route: 048
  4. LORAZEPAM. [Concomitant]
     Active Substance: LORAZEPAM
     Dosage: FAZIA PREVIAMENTE LORAZEPAM 2, 5 ?1 COMPRIMIDO E MEIO POR NOITE, TENDO REDUZIDO PARA 1
     Route: 048
  5. TRIMETAZIDINE [Concomitant]
     Active Substance: TRIMETAZIDINE
     Dosage: UNK

REACTIONS (3)
  - Headache [Recovered/Resolved]
  - Memory impairment [Recovered/Resolved]
  - Disorientation [Recovered/Resolved]
